FAERS Safety Report 9459890 (Version 1)
Quarter: 2013Q3

REPORT INFORMATION
  Report Type: Spontaneous
  Country: AU (occurrence: AU)
  Receive Date: 20130815
  Receipt Date: 20130815
  Transmission Date: 20140515
  Serious: Yes (Hospitalization)
  Sender: FDA-Public Use
  Company Number: AU-PFIZER INC-2013233481

PATIENT
  Age: 67 Year
  Sex: Male
  Weight: 60 kg

DRUGS (9)
  1. CADUET [Suspect]
     Dosage: 10/20
  2. VANCOMYCIN [Interacting]
     Dosage: UNK
     Dates: start: 20120722, end: 20120921
  3. RIFAMPICIN [Interacting]
     Dosage: 1200 MG TOTAL, UNK
     Dates: start: 20120804, end: 20120816
  4. ACETYLSALICYLIC ACID/DIPYRIDAMOLE [Concomitant]
  5. METFORMIN [Concomitant]
  6. OXYCONTIN [Concomitant]
  7. PANTOPRAZOLE [Concomitant]
  8. FUSIDATE SODIUM [Concomitant]
  9. TRANDOLAPRIL [Concomitant]

REACTIONS (6)
  - Drug interaction [Unknown]
  - Renal failure acute [Recovered/Resolved]
  - Pyrexia [Unknown]
  - Confusional state [Unknown]
  - Infection [Unknown]
  - Dehydration [Unknown]
